FAERS Safety Report 7608262-4 (Version None)
Quarter: 2011Q3

REPORT INFORMATION
  Report Type: 
  Country: None (occurrence: None)
  Receive Date: 20110712
  Receipt Date: 20100518
  Transmission Date: 20111222
  Serious: Yes (Hospitalization)
  Sender: FDA-Public Use
  Company Number: 2010050040

PATIENT
  Age: 68 Year
  Sex: Male
  Weight: 117.9352 kg

DRUGS (3)
  1. WELCHOL [Concomitant]
  2. SOMA [Suspect]
     Indication: BACK PAIN
     Dosage: 250 MG (250 MG,1 IN 1 D),ORAL
     Route: 048
     Dates: start: 20100511, end: 20100511
  3. LIPITOR [Concomitant]

REACTIONS (1)
  - VERTIGO [None]
